FAERS Safety Report 9141840 (Version 1)
Quarter: 2013Q1

REPORT INFORMATION
  Report Type: Spontaneous
  Country: US (occurrence: US)
  Receive Date: 20130305
  Receipt Date: 20130305
  Transmission Date: 20140127
  Serious: No
  Sender: FDA-Public Use
  Company Number: US-AMGEN-USASP2013011118

PATIENT
  Sex: Male

DRUGS (1)
  1. ENBREL [Suspect]
     Indication: CROHN^S DISEASE
     Dosage: UNK
     Dates: start: 2011

REACTIONS (3)
  - Anxiety [Unknown]
  - Chest pain [Unknown]
  - Lymphadenopathy [Unknown]
